FAERS Safety Report 9981226 (Version 1)
Quarter: 2014Q1

REPORT INFORMATION
  Report Type: Spontaneous
  Country: NL (occurrence: None)
  Receive Date: 20140305
  Receipt Date: 20140305
  Transmission Date: 20141002
  Serious: Yes (Hospitalization)
  Sender: FDA-Public Use
  Company Number: NL-ALKEM-000508

PATIENT
  Age: 58 Year
  Sex: Female

DRUGS (4)
  1. MYCOPHENOLATE MOFETIL (MYCOPHENOLATE MOFETIL) [Suspect]
     Indication: IMMUNOSUPPRESSION
  2. PREDNISONE (PREDNISONE) [Suspect]
     Indication: IMMUNOSUPPRESSION
  3. TACROLIMUS (TACROLIMUS) [Suspect]
     Indication: IMMUNOSUPPRESSION
  4. VALGANCICLOVIR (VALGANCICLOVIR) [Concomitant]

REACTIONS (6)
  - Pyelonephritis [None]
  - Transplant rejection [None]
  - Sepsis [None]
  - Urinary tract infection [None]
  - Pseudomonas infection [None]
  - Serratia infection [None]
